FAERS Safety Report 4726369-6 (Version None)
Quarter: 2005Q3

REPORT INFORMATION
  Report Type: 
  Country: None (occurrence: None)
  Receive Date: 20050727
  Receipt Date: 20050716
  Transmission Date: 20060218
  Serious: Yes (Life-Threatening, Other)
  Sender: FDA-Public Use
  Company Number: GXKR2005DE01331

PATIENT
  Age: 72 Year
  Sex: Male

DRUGS (6)
  1. HEPARIN [Suspect]
     Indication: CORONARY ARTERY SURGERY
     Dosage: 35000 IU,
  2. HEPARIN [Suspect]
     Dosage: 5000, INTRAVENOUS
     Route: 042
  3. ACETYLSALICYLIC ACID SRT [Suspect]
  4. ATORVASTATIN CALCIUM [Suspect]
  5. CLOPIDOGREL BISULFATE [Suspect]
     Dosage: 300 MG, ORAL
     Route: 048
  6. CLOPIDOGREL BISULFATE [Suspect]
     Dosage: 75 MG, ORAL
     Route: 048

REACTIONS (4)
  - CEREBRAL INFARCTION [None]
  - CHEST PAIN [None]
  - DRUG INTERACTION [None]
  - HEPARIN-INDUCED THROMBOCYTOPENIA [None]
